FAERS Safety Report 4976650-0 (Version None)
Quarter: 2006Q2

REPORT INFORMATION
  Report Type: 
  Country: None (occurrence: None)
  Receive Date: 20060419
  Receipt Date: 20050325
  Transmission Date: 20061013
  Serious: Yes (Hospitalization, Disabling, Other)
  Sender: FDA-Public Use
  Company Number: US-MERCK-0503USA04973

PATIENT
  Age: 61 Year
  Sex: Female
  Weight: 84 kg

DRUGS (30)
  1. VIOXX [Suspect]
     Indication: ARTHRITIS
     Route: 048
     Dates: start: 20010101
  2. VIOXX [Suspect]
     Route: 048
     Dates: end: 20041001
  3. CELEBREX [Concomitant]
     Route: 065
  4. GLUCOTROL [Concomitant]
     Route: 065
  5. NITROGLYCERIN [Concomitant]
     Route: 065
  6. CARDIZEM [Concomitant]
     Route: 065
  7. GLUCOPHAGE [Concomitant]
     Route: 065
  8. HYDROCHLOROTHIAZIDE [Concomitant]
     Route: 048
  9. AVANDIA [Concomitant]
     Route: 065
  10. BETAPACE [Concomitant]
     Route: 065
  11. TYLENOL (CAPLET) [Concomitant]
     Route: 065
  12. DARVOCET [Concomitant]
     Route: 065
  13. COLACE [Concomitant]
     Route: 065
  14. ZOCOR [Concomitant]
     Route: 048
  15. DILAUDID [Concomitant]
     Route: 065
  16. NITROSTAT [Concomitant]
     Route: 065
  17. RESTORIL [Concomitant]
     Route: 065
  18. LOVENOX [Concomitant]
     Route: 065
  19. PREVACID [Concomitant]
     Route: 065
  20. HEPARIN [Concomitant]
     Route: 065
  21. ASPIRIN [Concomitant]
     Route: 065
  22. IBUPROFEN [Concomitant]
     Route: 065
  23. NAPROXEN [Concomitant]
     Route: 065
  24. METFORMIN [Concomitant]
     Route: 065
  25. PRAVACHOL [Concomitant]
     Route: 065
  26. VASOTEC [Concomitant]
     Route: 048
  27. LASIX [Concomitant]
     Route: 065
  28. TYLENOL W/ CODEINE NO. 3 [Concomitant]
     Route: 065
  29. OS-CAL [Concomitant]
     Route: 065
  30. [THERAPY UNSPECIFIED] [Concomitant]
     Route: 065

REACTIONS (20)
  - ABDOMINAL PAIN UPPER [None]
  - ATRIAL FIBRILLATION [None]
  - BLINDNESS UNILATERAL [None]
  - CHEST PAIN [None]
  - DEPRESSION [None]
  - DIABETES MELLITUS [None]
  - DIABETIC RETINOPATHY [None]
  - DYSLIPIDAEMIA [None]
  - EYE IRRITATION [None]
  - FUNGAL INFECTION [None]
  - LYMPHOEDEMA [None]
  - MACULAR OEDEMA [None]
  - MUSCULOSKELETAL CHEST PAIN [None]
  - OSTEOPOROSIS [None]
  - OVARIAN CYST [None]
  - RETINAL TEAR [None]
  - RETINAL VEIN OCCLUSION [None]
  - SPINAL OSTEOARTHRITIS [None]
  - VENOUS STASIS [None]
  - VITREOUS HAEMORRHAGE [None]
